FAERS Safety Report 13321483 (Version 2)
Quarter: 2017Q1

REPORT INFORMATION
  Report Type: Spontaneous
  Country: AU (occurrence: AU)
  Receive Date: 20170310
  Receipt Date: 20170320
  Transmission Date: 20170428
  Serious: Yes (Other)
  Sender: FDA-Public Use
  Company Number: AU-009507513-1703AUS003195

PATIENT
  Age: 14 Year
  Sex: Male
  Weight: 56 kg

DRUGS (1)
  1. SINGULAIR [Suspect]
     Active Substance: MONTELUKAST SODIUM
     Dosage: 10 MG, QD
     Dates: start: 20100902, end: 20160906

REACTIONS (14)
  - Vision blurred [Recovering/Resolving]
  - Mood altered [Recovering/Resolving]
  - Restlessness [Recovering/Resolving]
  - Agitation [Recovering/Resolving]
  - Aggression [Recovering/Resolving]
  - Rash [Recovering/Resolving]
  - Suicidal ideation [Recovering/Resolving]
  - Hostility [Recovering/Resolving]
  - Irritability [Recovering/Resolving]
  - Insomnia [Recovering/Resolving]
  - Cough [Recovering/Resolving]
  - Depression [Recovering/Resolving]
  - Influenza like illness [Recovering/Resolving]
  - Fatigue [Recovering/Resolving]

NARRATIVE: CASE EVENT DATE: 2014
